FAERS Safety Report 5157373-4 (Version None)
Quarter: 2006Q4

REPORT INFORMATION
  Report Type: 
  Country: None (occurrence: None)
  Receive Date: 20061127
  Receipt Date: 20010302
  Transmission Date: 20070319
  Serious: Yes (Hospitalization)
  Sender: FDA-Public Use
  Company Number: FR-AVENTIS-200111981FR

PATIENT

DRUGS (7)
  1. LASILIX                            /00032601/ [Suspect]
     Dates: end: 20010206
  2. ALDACTONE [Suspect]
     Dates: end: 20010206
  3. DOPRAM [Suspect]
     Dosage: DOSE UNIT: MILLIGRAM PER KILOGRAM BODYWEIGHT PER HOUR
     Route: 042
     Dates: end: 20010206
  4. DOPRAM [Suspect]
     Dosage: DOSE UNIT: MILLIGRAM PER KILOGRAM BODYWEIGHT PER HOUR
     Route: 042
  5. DOPRAM [Suspect]
     Route: 048
     Dates: end: 20010206
  6. RANIPLEX [Suspect]
     Route: 042
     Dates: end: 20010206
  7. CAFFEINE [Concomitant]

REACTIONS (4)
  - BRADYCARDIA [None]
  - ELECTROCARDIOGRAM QT PROLONGED [None]
  - GASTROOESOPHAGEAL REFLUX DISEASE [None]
  - HYPOXIA [None]
